FAERS Safety Report 4490217-2 (Version None)
Quarter: 2004Q4

REPORT INFORMATION
  Report Type: 
  Country: None (occurrence: None)
  Receive Date: 20041027
  Receipt Date: 20041014
  Transmission Date: 20050328
  Serious: Yes (Death)
  Sender: FDA-Public Use
  Company Number: 2004079230

PATIENT
  Age: 47 Year
  Sex: Male
  Weight: 85 kg

DRUGS (3)
  1. ZELDOX (CAPSULES) (ZIPRASIDONE) [Suspect]
     Indication: SCHIZOPHRENIA, PARANOID TYPE
     Dosage: ORAL
     Route: 048
     Dates: start: 20040101
  2. QUETIAPINE FUMARATE (QUETIAPINE FUMARATE) [Suspect]
     Indication: SCHIZOPHRENIA, PARANOID TYPE
     Dosage: 600 MG (1 IN 1 D), ORAL
     Route: 048
     Dates: start: 20040101
  3. HERBAL PREPARATION (HERBAL PREPARATION) [Suspect]

REACTIONS (6)
  - CARDIAC DEATH [None]
  - CARDIOMEGALY [None]
  - DRUG EFFECT DECREASED [None]
  - DRUG INTERACTION [None]
  - DYSKINESIA [None]
  - ELECTROCARDIOGRAM QT SHORTENED [None]
